FAERS Safety Report 4267975-5 (Version None)
Quarter: 2004Q1

REPORT INFORMATION
  Report Type: 
  Country: None (occurrence: None)
  Receive Date: 20040109
  Receipt Date: 20031216
  Transmission Date: 20041129
  Serious: Yes (Life-Threatening, Hospitalization, Disabling)
  Sender: FDA-Public Use
  Company Number: WAES 0312USA01818

PATIENT
  Age: 46 Year
  Sex: Male
  Weight: 92 kg

DRUGS (8)
  1. LIPITOR [Concomitant]
     Route: 048
     Dates: start: 20030501, end: 20030601
  2. ZETIA [Suspect]
     Route: 048
     Dates: start: 20030506, end: 20030601
  3. ZETIA [Suspect]
     Route: 048
     Dates: start: 20030506, end: 20030601
  4. ALLEGRA [Concomitant]
     Dates: end: 20030601
  5. GLYBURIDE [Concomitant]
  6. METFORMIN [Concomitant]
  7. RANITIDINE [Concomitant]
     Dates: end: 20030601
  8. DIOVAN [Concomitant]
     Dates: end: 20030601

REACTIONS (17)
  - ABDOMINAL PAIN UPPER [None]
  - ALANINE AMINOTRANSFERASE INCREASED [None]
  - ARTHRALGIA [None]
  - ASPARTATE AMINOTRANSFERASE INCREASED [None]
  - BLOOD ALKALINE PHOSPHATASE INCREASED [None]
  - BLOOD BILIRUBIN INCREASED [None]
  - BLOOD CHOLESTEROL INCREASED [None]
  - BLOOD GLUCOSE INCREASED [None]
  - CHOLELITHIASIS [None]
  - HAEMATURIA [None]
  - HAEMOTHORAX [None]
  - HEPATITIS C [None]
  - HEPATOMEGALY [None]
  - IATROGENIC INJURY [None]
  - MYALGIA [None]
  - PNEUMOTHORAX [None]
  - VISUAL ACUITY REDUCED [None]
